FAERS Safety Report 7031996-X (Version None)
Quarter: 2010Q4

REPORT INFORMATION
  Report Type: 
  Country: None (occurrence: None)
  Receive Date: 20101007
  Receipt Date: 20100323
  Transmission Date: 20110411
  Serious: Yes (Life-Threatening, Hospitalization)
  Sender: FDA-Public Use
  Company Number: US-BAYER-201014053NA

PATIENT
  Age: 28 Year
  Sex: Female
  Weight: 62 kg

DRUGS (5)
  1. YASMIN [Suspect]
     Indication: CONTRACEPTION
     Route: 048
     Dates: start: 20070101, end: 20070601
  2. YAZ [Suspect]
     Indication: CONTRACEPTION
     Route: 048
     Dates: start: 20050101, end: 20060101
  3. HUMULIN N [Concomitant]
  4. HUMULIN R [Concomitant]
  5. PREDNISONE [Concomitant]

REACTIONS (1)
  - RENAL FAILURE [None]
